FAERS Safety Report 18061025 (Version 1)
Quarter: 2020Q3

REPORT INFORMATION
  Report Type: Spontaneous
  Country: US (occurrence: US)
  Receive Date: 20200723
  Receipt Date: 20200723
  Transmission Date: 20201103
  Serious: No
  Sender: FDA-Public Use
  Company Number: US-ENDO PHARMACEUTICALS INC-2019-110904

PATIENT
  Age: 74 Year
  Sex: Male
  Weight: 78.01 kg

DRUGS (5)
  1. METOPROLOL. [Concomitant]
     Active Substance: METOPROLOL
     Indication: HYPERTENSION
  2. EDEX [Suspect]
     Active Substance: ALPROSTADIL
     Indication: ERECTILE DYSFUNCTION
     Dosage: 10 MCG, UNKNOWN
     Route: 065
     Dates: start: 201908
  3. EDEX [Suspect]
     Active Substance: ALPROSTADIL
     Dosage: UNKNOWN, INJECT INTO PENIS
     Route: 065
     Dates: start: 20191209
  4. EDEX [Suspect]
     Active Substance: ALPROSTADIL
     Dosage: 20 MCG, UNKNOWN
     Route: 065
     Dates: start: 201910
  5. EDEX [Suspect]
     Active Substance: ALPROSTADIL
     Dosage: UNKNOWN, INJECT INTO PENIS; 40 MCG
     Route: 065
     Dates: start: 20191120

REACTIONS (4)
  - Wrong technique in product usage process [Unknown]
  - Blood blister [Recovered/Resolved]
  - Underdose [Unknown]
  - Drug ineffective [Unknown]

NARRATIVE: CASE EVENT DATE: 201908
